FAERS Safety Report 18629908 (Version 1)
Quarter: 2020Q4

REPORT INFORMATION
  Report Type: Spontaneous
  Country: US (occurrence: US)
  Receive Date: 20201217
  Receipt Date: 20201217
  Transmission Date: 20210114
  Serious: No
  Sender: FDA-Public Use
  Company Number: US-OCULAR THERAPEUTIX-2020OCX00028

PATIENT
  Age: 68 Year
  Sex: Female
  Weight: 53.52 kg

DRUGS (3)
  1. DEXTENZA [Suspect]
     Active Substance: DEXAMETHASONE
     Indication: POST PROCEDURAL INFLAMMATION
     Dosage: UNK, INSERTED THROUGH RIGHT PUNCTUM
     Dates: start: 20200902
  2. VIGAMOX [Concomitant]
     Active Substance: MOXIFLOXACIN HYDROCHLORIDE
     Dosage: UNK, 4X/DAY IN RIGHT EYE
     Route: 047
     Dates: start: 20200902, end: 20200909
  3. DEXTENZA [Suspect]
     Active Substance: DEXAMETHASONE
     Indication: EYE INFLAMMATION

REACTIONS (2)
  - Corneal disorder [Recovered/Resolved]
  - Therapeutic product effect incomplete [Recovered/Resolved]

NARRATIVE: CASE EVENT DATE: 20200910
